FAERS Safety Report 10670604 (Version 3)
Quarter: 2015Q1

REPORT INFORMATION
  Report Type: Spontaneous
  Country: CH (occurrence: CH)
  Receive Date: 20141223
  Receipt Date: 20150115
  Transmission Date: 20150720
  Serious: Yes (Hospitalization)
  Sender: FDA-Public Use
  Company Number: CH-TEVA-530557USA

PATIENT
  Age: 28 Year
  Sex: Female

DRUGS (2)
  1. LEVONORGESTREL. [Suspect]
     Active Substance: LEVONORGESTREL
     Indication: POST COITAL CONTRACEPTION
     Route: 048
  2. LAMOTRIGINE. [Interacting]
     Active Substance: LAMOTRIGINE
     Indication: EPILEPSY
     Route: 065

REACTIONS (2)
  - Drug interaction [Recovered/Resolved]
  - Drug ineffective [Unknown]
